FAERS Safety Report 10234542 (Version 2)
Quarter: 2014Q3

REPORT INFORMATION
  Report Type: Spontaneous
  Country: US (occurrence: US)
  Receive Date: 20140613
  Receipt Date: 20140720
  Transmission Date: 20150326
  Serious: No
  Sender: FDA-Public Use
  Company Number: US-009507513-1406USA006768

PATIENT
  Age: 60 Year
  Sex: Female

DRUGS (4)
  1. PEGINTRON [Suspect]
     Active Substance: PEGINTERFERON ALFA-2B
     Indication: HEPATITIS C
     Dosage: 0.5 ML, ONCE A WEEK, REDIPEN
     Dates: start: 201405
  2. PAXIL [Concomitant]
     Active Substance: PAROXETINE HYDROCHLORIDE
  3. METFORMIN [Concomitant]
     Active Substance: METFORMIN HYDROCHLORIDE
  4. GLYBURIDE. [Concomitant]
     Active Substance: GLYBURIDE

REACTIONS (4)
  - Impatience [Not Recovered/Not Resolved]
  - Malaise [Not Recovered/Not Resolved]
  - Drug dose omission [Unknown]
  - Product quality issue [Unknown]

NARRATIVE: CASE EVENT DATE: 201406
